FAERS Safety Report 5287973-2 (Version None)
Quarter: 2007Q2

REPORT INFORMATION
  Report Type: 
  Country: None (occurrence: None)
  Receive Date: 20070405
  Receipt Date: 20070404
  Transmission Date: 20071010
  Serious: Yes (Other)
  Sender: FDA-Public Use
  Company Number: IT-JNJFOC-20070304194

PATIENT
  Sex: Male

DRUGS (6)
  1. TAVANIC [Suspect]
     Indication: PNEUMONIA
     Route: 048
  2. ACETAMINOPHEN [Concomitant]
     Indication: PYREXIA
     Route: 048
  3. FAXIPARINA [Concomitant]
     Route: 058
  4. ASPIRIN [Concomitant]
     Route: 048
  5. CONTRAMAL [Concomitant]
     Route: 065
  6. ACETAMINOPHEN [Concomitant]
     Route: 065

REACTIONS (2)
  - ARTERIAL DISORDER [None]
  - TENDON DISORDER [None]
